FAERS Safety Report 9183584 (Version 1)
Quarter: 2013Q1

REPORT INFORMATION
  Report Type: Spontaneous
  Country: PR (occurrence: PR)
  Receive Date: 20130322
  Receipt Date: 20130322
  Transmission Date: 20140127
  Serious: No
  Sender: FDA-Public Use
  Company Number: PR-BRISTOL-MYERS SQUIBB COMPANY-16558751

PATIENT
  Age: 57 Year
  Sex: Male
  Weight: 95.69 kg

DRUGS (1)
  1. ERBITUX [Suspect]
     Dosage: 4 - 5 TREATMENTS

REACTIONS (1)
  - Rash papular [Unknown]
